FAERS Safety Report 9237925 (Version 1)
Quarter: 2013Q2

REPORT INFORMATION
  Report Type: Spontaneous
  Country: KR (occurrence: None)
  Receive Date: 20130415
  Receipt Date: 20130415
  Transmission Date: 20140414
  Serious: Yes (Other)
  Sender: FDA-Public Use
  Company Number: KR-INDICUS PHARMA-000063

PATIENT
  Age: 69 Year
  Sex: Male

DRUGS (2)
  1. DONEPEZIL(DONEPEZIL) [Suspect]
     Indication: COGNITIVE DISORDER
     Dosage: 10.00-MG-1.0DAYS/
  2. RISPERIDONE (RISPERIDONE) [Suspect]
     Indication: DELUSION
     Dosage: 2.00-MG-1.0DAYS/

REACTIONS (5)
  - Parkinsonism [None]
  - Mental status changes [None]
  - Headache [None]
  - Fall [None]
  - Activities of daily living impaired [None]
